FAERS Safety Report 13129336 (Version 1)
Quarter: 2017Q1

REPORT INFORMATION
  Report Type: Spontaneous
  Country: US (occurrence: US)
  Receive Date: 20170118
  Receipt Date: 20170118
  Transmission Date: 20170428
  Serious: Yes (Hospitalization)
  Sender: FDA-Public Use
  Company Number: None

PATIENT
  Age: 50 Year
  Sex: Male

DRUGS (1)
  1. CEFEPIME 1G B BRAUN [Suspect]
     Active Substance: CEFEPIME HYDROCHLORIDE
     Indication: WOUND DRAINAGE
     Route: 042
     Dates: start: 20161103

REACTIONS (2)
  - Pruritus [None]
  - Rash generalised [None]

NARRATIVE: CASE EVENT DATE: 20161103
